FAERS Safety Report 4764984-4 (Version None)
Quarter: 2005Q3

REPORT INFORMATION
  Report Type: 
  Country: None (occurrence: None)
  Receive Date: 20050909
  Receipt Date: 20050902
  Transmission Date: 20060218
  Serious: Yes (Hospitalization)
  Sender: FDA-Public Use
  Company Number: FR-ROCHE-416315

PATIENT
  Age: 85 Year
  Sex: Female

DRUGS (10)
  1. ROCEPHIN [Suspect]
     Route: 065
     Dates: start: 20050307, end: 20050319
  2. GENTAMYCIN SULFATE [Suspect]
     Route: 065
     Dates: start: 20050307, end: 20050324
  3. MONO-TILDIEM LP [Concomitant]
     Indication: ESSENTIAL HYPERTENSION
     Route: 048
  4. DEROXAT [Concomitant]
     Route: 048
  5. CORDARONE [Concomitant]
     Indication: ATRIAL FIBRILLATION
     Dosage: INDICATION REPORTED AS ARTRIAL FIBRILLATION AND FLUTTER.
     Route: 048
  6. CALCIPARINE [Concomitant]
     Route: 048
  7. MOTILIUM [Concomitant]
  8. DOLIPRANE [Concomitant]
  9. DIFFU K [Concomitant]
  10. CLINOMEL [Concomitant]

REACTIONS (1)
  - RENAL FAILURE ACUTE [None]
